FAERS Safety Report 19687253 (Version 1)
Quarter: 2021Q3

REPORT INFORMATION
  Report Type: Spontaneous
  Country: US (occurrence: US)
  Receive Date: 20210811
  Receipt Date: 20210811
  Transmission Date: 20211014
  Serious: No
  Sender: FDA-Public Use
  Company Number: US-IGSA-BIG0015559

PATIENT
  Age: 46 Year
  Sex: Male

DRUGS (1)
  1. GAMUNEX?C [Suspect]
     Active Substance: HUMAN IMMUNOGLOBULIN G
     Indication: MYASTHENIA GRAVIS
     Dosage: UNK
     Route: 042
     Dates: start: 20210727, end: 20210727

REACTIONS (3)
  - Flushing [Unknown]
  - Feeling hot [Unknown]
  - Cough [Unknown]

NARRATIVE: CASE EVENT DATE: 20210727
